FAERS Safety Report 7491356-4 (Version None)
Quarter: 2011Q2

REPORT INFORMATION
  Report Type: 
  Country: None (occurrence: None)
  Receive Date: 20110519
  Receipt Date: 20110511
  Transmission Date: 20111010
  Serious: Yes (Death, Hospitalization)
  Sender: FDA-Public Use
  Company Number: BR-ELI_LILLY_AND_COMPANY-BR201105001721

PATIENT
  Sex: Male
  Weight: 89 kg

DRUGS (4)
  1. CAPTOPRIL [Concomitant]
     Dosage: UNK
     Dates: start: 20110428
  2. HYDROCHLOROTHIAZIDE [Concomitant]
     Dosage: UNK
     Dates: start: 20110428
  3. CISPLATIN [Suspect]
     Indication: NON-SMALL CELL LUNG CANCER
     Dosage: 150 MG, UNK
     Dates: start: 20110317
  4. GEMCITABINE HYDROCHLORIDE [Suspect]
     Indication: NON-SMALL CELL LUNG CANCER
     Dosage: 2550 MG, UNK
     Dates: start: 20110317

REACTIONS (2)
  - RENAL FAILURE [None]
  - OEDEMA [None]
